FAERS Safety Report 19419299 (Version 2)
Quarter: 2021Q2

REPORT INFORMATION
  Report Type: Spontaneous
  Country: DE (occurrence: DE)
  Receive Date: 20210615
  Receipt Date: 20210617
  Transmission Date: 20210717
  Serious: Yes (Hospitalization)
  Sender: FDA-Public Use
  Company Number: DE-PFIZER INC-2021638598

PATIENT
  Age: 66 Year
  Sex: Female

DRUGS (12)
  1. VENLAFAXINE HCL [Suspect]
     Active Substance: VENLAFAXINE HYDROCHLORIDE
     Dosage: 150 MG, 1X/DAY, PROLONGED?RELEASE CAPSULE 0?0?1?0
  2. METOPROLOL. [Concomitant]
     Active Substance: METOPROLOL
     Dosage: 95 MG, 2X/DAY, 1?0?1?0, PROLONGED?RELEASE TABLET   TABLET
  3. PANTOPRAZOLE [Concomitant]
     Active Substance: PANTOPRAZOLE
     Dosage: 20 MG, 1X/DAY, 1?0?0?0, TABLET
  4. EISEN?II [Concomitant]
     Dosage: 100 MG, 1X/DAY, 1?0?0?0, CAPSULE
  5. ALLOPURINOL. [Concomitant]
     Active Substance: ALLOPURINOL
     Dosage: 300 MG, 1X/DAY,  0?0?1?0, TABLET
  6. HCT AAA [Concomitant]
     Dosage: 1 DF, 1X/DAY, 1?0?0?0, TABLET
  7. MIRTAZAPIN [Interacting]
     Active Substance: MIRTAZAPINE
     Dosage: 15 MG, 1X/DAY, 0?0?1?0, TABLET
  8. BENSERAZIDE/LEVODOPA [Concomitant]
     Active Substance: BENSERAZIDE\LEVODOPA
     Dosage: 1 DF, 1X/DAY, 0?0?1?0, TABLET
  9. EDOXABAN [Interacting]
     Active Substance: EDOXABAN TOSYLATE
     Dosage: 60 MG, 1X/DAY, 1?0?0?0, TABLET
  10. CANDECOR [Concomitant]
     Active Substance: CANDESARTAN CILEXETIL
     Dosage: 1 DF, 2X/DAY, 1?0?1?0, TABLET
  11. PREGABALIN. [Concomitant]
     Active Substance: PREGABALIN
     Dosage: 150 MG, 2X/DAY, 1?0?1?0, CAPSULES
  12. LEVOTHYROXINE SODIUM. [Concomitant]
     Active Substance: LEVOTHYROXINE SODIUM
     Dosage: 0.112 MG, 1X/DAY, 1?0?0?0, TABLET

REACTIONS (6)
  - Dyspepsia [Unknown]
  - Drug interaction [Unknown]
  - Abdominal pain [Unknown]
  - Diarrhoea [Unknown]
  - Nausea [Unknown]
  - Atrial fibrillation [Unknown]
